FAERS Safety Report 24576589 (Version 2)
Quarter: 2024Q4

REPORT INFORMATION
  Report Type: Spontaneous
  Country: US (occurrence: US)
  Receive Date: 20241104
  Receipt Date: 20241205
  Transmission Date: 20250114
  Serious: No
  Sender: PFIZER
  Company Number: US-PFIZER INC-202400290969

PATIENT
  Age: 70 Year
  Sex: Female

DRUGS (1)
  1. ELELYSO [Suspect]
     Active Substance: TALIGLUCERASE ALFA
     Dosage: EVERY 2 WEEKS

REACTIONS (1)
  - Herpes zoster [Unknown]

NARRATIVE: CASE EVENT DATE: 20241001
